FAERS Safety Report 6065611-9 (Version None)
Quarter: 2009Q1

REPORT INFORMATION
  Report Type: 
  Country: None (occurrence: None)
  Receive Date: 20090204
  Receipt Date: 20090119
  Transmission Date: 20090719
  Serious: Yes (Hospitalization)
  Sender: FDA-Public Use
  Company Number: FR-GENENTECH-276476

PATIENT
  Sex: Female

DRUGS (4)
  1. AVASTIN [Suspect]
     Indication: NEOPLASM MALIGNANT
     Dosage: 1150 MG, SINGLE
     Route: 042
     Dates: start: 20081113, end: 20081113
  2. LYRICA [Suspect]
     Indication: DRUG USE FOR UNKNOWN INDICATION
     Dosage: 75 MG, TID
     Route: 048
     Dates: start: 20081104
  3. GEMZAR [Suspect]
     Indication: NEOPLASM MALIGNANT
     Dosage: 2400 MG, UNK
     Route: 042
     Dates: start: 20081113, end: 20081113
  4. SOLUPRED [Concomitant]
     Indication: DRUG USE FOR UNKNOWN INDICATION
     Dosage: UNK
     Dates: start: 20081113

REACTIONS (1)
  - ATRIAL FIBRILLATION [None]
